FAERS Safety Report 6422960-X (Version None)
Quarter: 2009Q4

REPORT INFORMATION
  Report Type: 
  Country: None (occurrence: None)
  Receive Date: 20091102
  Receipt Date: 20091021
  Transmission Date: 20100525
  Serious: Yes (Life-Threatening, Hospitalization, Other)
  Sender: FDA-Public Use
  Company Number: FR-BAYER-200934710GPV

PATIENT
  Age: 32 Year
  Sex: Female
  Weight: 56 kg

DRUGS (2)
  1. MIRENA [Suspect]
     Indication: DRUG USE FOR UNKNOWN INDICATION
     Route: 015
     Dates: start: 20090914, end: 20090915
  2. FERROGRAD [Concomitant]
     Indication: DRUG USE FOR UNKNOWN INDICATION
     Dosage: UNIT DOSE: 500 MG
     Route: 048
     Dates: start: 20090914

REACTIONS (20)
  - ABDOMINAL PAIN [None]
  - ACUTE RESPIRATORY DISTRESS SYNDROME [None]
  - C-REACTIVE PROTEIN INCREASED [None]
  - DELUSION [None]
  - DISSEMINATED INTRAVASCULAR COAGULATION [None]
  - ENCEPHALOPATHY [None]
  - ENDOMETRITIS [None]
  - ENTEROCOCCAL INFECTION [None]
  - GENITAL DISCHARGE [None]
  - HEPATIC ENZYME ABNORMAL [None]
  - HYPOVOLAEMIA [None]
  - INTESTINAL DILATATION [None]
  - MIXED LIVER INJURY [None]
  - NIGHTMARE [None]
  - PELVIC PAIN [None]
  - PERITONEAL INFECTION [None]
  - PLEURAL EFFUSION [None]
  - PYREXIA [None]
  - SEPTIC SHOCK [None]
  - WHITE BLOOD CELL COUNT INCREASED [None]
